FAERS Safety Report 8879465 (Version 1)
Quarter: 2012Q4

REPORT INFORMATION
  Report Type: 
  Country: US (occurrence: US)
  Receive Date: 20121101
  Receipt Date: 20121101
  Transmission Date: 20130627
  Serious: No
  Sender: FDA-Public Use
  Company Number: US-009507513-1210USA014332

PATIENT
  Age: 48 Year
  Sex: Female
  Weight: 65.31 kg

DRUGS (2)
  1. NUVARING [Suspect]
     Indication: ENDOMETRIOSIS
     Dosage: UNK, 3 week in one week ring free break
     Route: 067
     Dates: start: 20120908
  2. VITAMINS (UNSPECIFIED) [Concomitant]

REACTIONS (2)
  - Metrorrhagia [Recovered/Resolved]
  - Off label use [Unknown]
